FAERS Safety Report 20412401 (Version 6)
Quarter: 2023Q4

REPORT INFORMATION
  Report Type: Spontaneous
  Country: US (occurrence: US)
  Receive Date: 20220201
  Receipt Date: 20231103
  Transmission Date: 20240110
  Serious: Yes (Other)
  Sender: FDA-Public Use
  Company Number: US-PFIZER INC-202200113613

PATIENT
  Age: 80 Year
  Sex: Male

DRUGS (1)
  1. IBRANCE [Suspect]
     Active Substance: PALBOCICLIB
     Indication: Breast cancer male
     Dosage: 125 MG, CYCLIC (TAKE 1 TABLET DAILY FOR 21 DAYS WITH 7 DAYS OFF EVERY 28 DAYS)
     Route: 048

REACTIONS (4)
  - Weight decreased [Unknown]
  - COVID-19 [Unknown]
  - Condition aggravated [Unknown]
  - Full blood count decreased [Unknown]

NARRATIVE: CASE EVENT DATE: 20210101
